FAERS Safety Report 22596479 (Version 3)
Quarter: 2024Q3

REPORT INFORMATION
  Report Type: Spontaneous
  Country: PL (occurrence: PL)
  Receive Date: 20230613
  Receipt Date: 20240713
  Transmission Date: 20241017
  Serious: Yes (Hospitalization)
  Sender: SANOFI AVENTIS
  Company Number: PL-SA-2022SA514969

PATIENT
  Age: 78 Year
  Sex: Male

DRUGS (2)
  1. ENOXAPARIN SODIUM [Suspect]
     Active Substance: ENOXAPARIN SODIUM
     Indication: Anticoagulant therapy
     Dosage: 40 MG, QD
     Route: 058
  2. APIXABAN [Concomitant]
     Active Substance: APIXABAN
     Indication: Anticoagulant therapy
     Dosage: UNK

REACTIONS (9)
  - Angiokeratoma [Recovering/Resolving]
  - Vasculitic rash [Recovering/Resolving]
  - Papule [Recovering/Resolving]
  - Skin lesion [Recovering/Resolving]
  - Skin mass [Recovering/Resolving]
  - Acanthosis [Recovering/Resolving]
  - Hyperkeratosis [Recovering/Resolving]
  - Papilloma [Recovering/Resolving]
  - Rash [Recovering/Resolving]
